FAERS Safety Report 19765482 (Version 1)
Quarter: 2021Q3

REPORT INFORMATION
  Report Type: Spontaneous
  Country: CZ (occurrence: CZ)
  Receive Date: 20210831
  Receipt Date: 20210831
  Transmission Date: 20211014
  Serious: Yes (Life-Threatening, Hospitalization, Other)
  Sender: FDA-Public Use
  Company Number: CZ-BRISTOL-MYERS SQUIBB COMPANY-BMS-2021-080297

PATIENT
  Age: 47 Year
  Sex: Female

DRUGS (5)
  1. DASATINIB. [Suspect]
     Active Substance: DASATINIB
     Indication: CHRONIC MYELOID LEUKAEMIA
     Dosage: 50 MILLIGRAM, QD
     Route: 065
     Dates: start: 200907
  2. DASATINIB. [Suspect]
     Active Substance: DASATINIB
     Dosage: 50 MILLIGRAM, QD
     Route: 065
  3. DASATINIB. [Suspect]
     Active Substance: DASATINIB
     Dosage: 70 MILLIGRAM, QD
     Route: 065
     Dates: start: 201204
  4. DASATINIB. [Suspect]
     Active Substance: DASATINIB
     Dosage: 100 MILLIGRAM, QD
     Route: 065
     Dates: start: 200909
  5. DASATINIB. [Suspect]
     Active Substance: DASATINIB
     Dosage: 60 MILLIGRAM, QD
     Route: 065
     Dates: start: 202002

REACTIONS (4)
  - Pleural effusion [Unknown]
  - Prescribed underdose [Unknown]
  - Pulmonary arterial hypertension [Unknown]
  - Rash maculo-papular [Unknown]
